FAERS Safety Report 7994865-4 (Version None)
Quarter: 2011Q4

REPORT INFORMATION
  Report Type: 
  Country: None (occurrence: None)
  Receive Date: 20111220
  Receipt Date: 20111209
  Transmission Date: 20120403
  Serious: Yes (Death, Hospitalization, Other)
  Sender: FDA-Public Use
  Company Number: US-BAXTER-2011BH037055

PATIENT
  Sex: Male

DRUGS (2)
  1. DIANEAL [Suspect]
     Indication: PERITONEAL DIALYSIS
     Route: 033
     Dates: end: 20111118
  2. DIANEAL [Suspect]
     Indication: PERITONEAL DIALYSIS
     Route: 033
     Dates: end: 20111118

REACTIONS (5)
  - POOR PERIPHERAL CIRCULATION [None]
  - VASCULAR BYPASS DYSFUNCTION [None]
  - UNRESPONSIVE TO STIMULI [None]
  - PULMONARY EMBOLISM [None]
  - ANGIOPATHY [None]
